FAERS Safety Report 8588508-9 (Version None)
Quarter: 2012Q3

REPORT INFORMATION
  Report Type: 
  Country: None (occurrence: None)
  Receive Date: 20120813
  Receipt Date: 20120804
  Transmission Date: 20120928
  Serious: Yes (Other)
  Sender: FDA-Public Use
  Company Number: US-JNJFOC-20120803741

PATIENT
  Sex: Female
  Weight: 108.86 kg

DRUGS (11)
  1. FOLIC ACID [Concomitant]
     Indication: LIVER DISORDER
     Route: 048
  2. BROMIDE [Suspect]
     Indication: ASTHMA
     Route: 055
  3. LEVOXYL [Concomitant]
     Indication: THYROID DISORDER
     Route: 065
  4. REMICADE [Suspect]
     Indication: RHEUMATOID ARTHRITIS
     Dosage: EVERY 7-8 WEEKS
     Route: 042
  5. ETODOLAC [Suspect]
     Indication: RHEUMATOID ARTHRITIS
     Route: 048
  6. QVAR 40 [Suspect]
     Indication: ASTHMA
     Route: 055
  7. ATENOLOL [Concomitant]
     Indication: PALPITATIONS
     Route: 048
  8. ADALAT [Concomitant]
     Indication: HYPERTENSION
     Route: 048
  9. LIPITOR [Concomitant]
     Indication: BLOOD CHOLESTEROL
     Route: 065
  10. METFORMIN HYDROCHLORIDE [Concomitant]
     Indication: DIABETES MELLITUS
     Route: 048
  11. METHOTREXATE SODIUM [Concomitant]
     Indication: RHEUMATOID ARTHRITIS
     Route: 048

REACTIONS (6)
  - ASTHMA [None]
  - FEELING ABNORMAL [None]
  - MEMORY IMPAIRMENT [None]
  - RHEUMATOID ARTHRITIS [None]
  - PERONEAL NERVE PALSY [None]
  - SPINAL COLUMN STENOSIS [None]
